FAERS Safety Report 8165114-1 (Version None)
Quarter: 2012Q1

REPORT INFORMATION
  Report Type: 
  Country: None (occurrence: None)
  Receive Date: 20120227
  Receipt Date: 20120221
  Transmission Date: 20120608
  Serious: No
  Sender: FDA-Public Use
  Company Number: US-PFIZER INC-2012046056

PATIENT
  Sex: Female
  Weight: 67.12 kg

DRUGS (3)
  1. LYRICA [Suspect]
     Indication: FIBROMYALGIA
     Dosage: UNK
     Route: 048
     Dates: start: 20080701
  2. CALCIUM [Concomitant]
     Dosage: UNK
  3. VITAMIN D [Concomitant]
     Dosage: UNK

REACTIONS (3)
  - LIGAMENT SPRAIN [None]
  - IRRITABLE BOWEL SYNDROME [None]
  - ACCIDENT AT WORK [None]
